FAERS Safety Report 4559063-5 (Version None)
Quarter: 2005Q1

REPORT INFORMATION
  Report Type: 
  Country: None (occurrence: None)
  Receive Date: 20050119
  Receipt Date: 20050106
  Transmission Date: 20050727
  Serious: Yes (Other)
  Sender: FDA-Public Use
  Company Number: HQWYE465610JAN05

PATIENT
  Sex: Female

DRUGS (2)
  1. EFFEXOR XR [Suspect]
     Dosage: 37.5 MG ^THE NEXT DAY AND SO FORTH^
  2. PAXIL [Suspect]

REACTIONS (3)
  - DRUG INTERACTION [None]
  - HOMICIDAL IDEATION [None]
  - SUICIDAL IDEATION [None]
